FAERS Safety Report 7210137-X (Version None)
Quarter: 2011Q1

REPORT INFORMATION
  Report Type: 
  Country: None (occurrence: None)
  Receive Date: 20110105
  Receipt Date: 20101223
  Transmission Date: 20110831
  Serious: Yes (Hospitalization, Other)
  Sender: FDA-Public Use
  Company Number: US-ELI_LILLY_AND_COMPANY-US201101000062

PATIENT
  Age: 65 Year
  Sex: Male

DRUGS (6)
  1. ZYPREXA ZYDIS [Suspect]
     Indication: SCHIZOAFFECTIVE DISORDER
     Dosage: 20 MG, DAILY (1/D)
  2. ZYPREXA [Suspect]
     Indication: SCHIZOAFFECTIVE DISORDER
     Dosage: 20 MG, DAILY (1/D)
  3. GEODON [Concomitant]
     Dosage: 20 MG, AS NEEDED
  4. ZYPREXA ZYDIS [Suspect]
     Dosage: 30 MG, DAILY (1/D)
  5. TAGAMET /00397402/ [Concomitant]
  6. ALBUTEROL [Concomitant]

REACTIONS (7)
  - DRUG DOSE OMISSION [None]
  - NEGATIVISM [None]
  - DRUG INEFFECTIVE [None]
  - OVERDOSE [None]
  - SELF INJURIOUS BEHAVIOUR [None]
  - BLINDNESS [None]
  - INTENTIONAL SELF-INJURY [None]
